FAERS Safety Report 10209894 (Version 3)
Quarter: 2014Q2

REPORT INFORMATION
  Report Type: Spontaneous
  Country: US (occurrence: US)
  Receive Date: 20140602
  Receipt Date: 20140610
  Transmission Date: 20141212
  Serious: Yes (Disabling)
  Sender: FDA-Public Use
  Company Number: US-SHIRE-US201401639

PATIENT
  Age: 46 Year
  Sex: Female
  Weight: 119.73 kg

DRUGS (9)
  1. ADDERALL XR [Suspect]
     Indication: ATTENTION DEFICIT/HYPERACTIVITY DISORDER
     Dosage: 30 MG, 2X/DAY:BID
     Route: 048
  2. ADDERALL XR [Suspect]
     Dosage: 30 MG, 2X/DAY:BID (AT 5:30 AM AND 11 AM)
     Route: 048
     Dates: start: 20140415, end: 20140418
  3. BENADRYL                           /00000402/ [Suspect]
     Indication: HYPOAESTHESIA
     Dosage: UNK, UNKNOWN
     Route: 065
     Dates: start: 20140418
  4. BENADRYL                           /00000402/ [Suspect]
     Indication: HYPOAESTHESIA ORAL
  5. BENADRYL                           /00000402/ [Suspect]
     Indication: FEELING ABNORMAL
  6. BENADRYL                           /00000402/ [Suspect]
     Indication: DYSPNOEA
  7. BENADRYL                           /00000402/ [Suspect]
     Indication: FATIGUE
  8. BENADRYL                           /00000402/ [Suspect]
     Indication: DIZZINESS
  9. BENADRYL                           /00000402/ [Suspect]
     Indication: LETHARGY

REACTIONS (14)
  - Hypoaesthesia [Recovered/Resolved]
  - Hypoaesthesia oral [Recovered/Resolved]
  - Activities of daily living impaired [Not Recovered/Not Resolved]
  - Lethargy [Recovered/Resolved]
  - Dyspnoea [Recovered/Resolved]
  - Dizziness [Recovered/Resolved]
  - Hypersomnia [Recovered/Resolved]
  - Feeling abnormal [Recovered/Resolved]
  - Treatment noncompliance [Unknown]
  - Fatigue [Recovered/Resolved]
  - Prescribed overdose [Recovered/Resolved]
  - Inappropriate schedule of drug administration [Recovered/Resolved]
  - Drug dispensing error [Unknown]
  - Product quality issue [Unknown]
